FAERS Safety Report 8408433 (Version 2)
Quarter: 2013Q2

REPORT INFORMATION
  Report Type: Spontaneous
  Country: US (occurrence: None)
  Receive Date: 20111227
  Receipt Date: 20120426
  Transmission Date: 20140414
  Serious: Yes (Other)
  Sender: FDA-Public Use
  Company Number: PHEH2011US07034

PATIENT
  Age: 22 Year
  Sex: Female

DRUGS (5)
  1. GILENYA [Suspect]
     Indication: MULTIPLE SCLEROSIS
     Route: 048
     Dates: start: 20110815
  2. ZYRTEC [Suspect]
     Dosage: 10 MG, QD
  3. VITAMIN D (ERGOCALCIFEROL) [Concomitant]
  4. ETHINYLESTRADIOL W/NORETHINDRONE (ETHINYLESTRADIOL, NORETHISTERONE) [Concomitant]
  5. ALLEGRA [Concomitant]

REACTIONS (2)
  - DRUG INTERACTION [None]
  - MENSTRUATION IRREGULAR [None]
